FAERS Safety Report 15759920 (Version 4)
Quarter: 2019Q3

REPORT INFORMATION
  Report Type: Report from Study
  Country: CO (occurrence: CO)
  Receive Date: 20181226
  Receipt Date: 20190903
  Transmission Date: 20191004
  Serious: Yes (Hospitalization, Other)
  Sender: FDA-Public Use
  Company Number: CO-TAKEDA-2018TUS034279

PATIENT
  Age: 21 Year
  Sex: Male
  Weight: 56 kg

DRUGS (5)
  1. MESALAZINE [Concomitant]
     Active Substance: MESALAMINE
     Dosage: UNK UNK, QD
  2. VEDOLIZUMAB [Suspect]
     Active Substance: VEDOLIZUMAB
     Indication: COLITIS ULCERATIVE
     Dosage: 300 MILLIGRAM
     Route: 042
     Dates: start: 20180814
  3. VEDOLIZUMAB [Suspect]
     Active Substance: VEDOLIZUMAB
     Dosage: 300 MILLIGRAM, Q4WEEKS
     Route: 042
     Dates: start: 20181117
  4. MESALAZINE [Concomitant]
     Active Substance: MESALAMINE
     Dosage: 2 GRAM, QD
  5. PREDNISOLONE. [Concomitant]
     Active Substance: PREDNISOLONE
     Dosage: UNK UNK, QD

REACTIONS (10)
  - Off label use [Unknown]
  - Insomnia [Not Recovered/Not Resolved]
  - Gastrointestinal infection [Not Recovered/Not Resolved]
  - Muscle mass [Unknown]
  - Arthralgia [Not Recovered/Not Resolved]
  - Colostomy [Unknown]
  - Therapeutic reaction time decreased [Unknown]
  - Internal haemorrhage [Unknown]
  - Ileostomy [Unknown]
  - Osteoporosis [Unknown]

NARRATIVE: CASE EVENT DATE: 201810
